FAERS Safety Report 12116641 (Version 2)
Quarter: 2016Q2

REPORT INFORMATION
  Report Type: Spontaneous
  Country: IT (occurrence: IT)
  Receive Date: 20160225
  Receipt Date: 20160414
  Transmission Date: 20160815
  Serious: Yes (Other)
  Sender: FDA-Public Use
  Company Number: IT-SA-2016SA033959

PATIENT
  Age: 59 Year
  Sex: Male
  Weight: 68 kg

DRUGS (9)
  1. DILATREND [Concomitant]
     Active Substance: CARVEDILOL
     Dosage: DILATREND (CARVEDILOL) - 25 MG TABLETS
     Route: 048
  2. TRIATEC [Concomitant]
     Active Substance: RAMIPRIL
     Dosage: TRIATEC (RAMIPRIL) - 10 MG DIVISIBLE TABLETS
     Route: 048
  3. LEVOFLOXACIN. [Concomitant]
     Active Substance: LEVOFLOXACIN
     Route: 042
     Dates: start: 20150925
  4. OMEPRAZOLE. [Concomitant]
     Active Substance: OMEPRAZOLE
     Route: 048
  5. LASIX [Concomitant]
     Active Substance: FUROSEMIDE
     Dosage: LASIX (FUROSEMIDE) - 25 MG TABLETS
     Route: 048
  6. CLEXANE [Suspect]
     Active Substance: ENOXAPARIN SODIUM
     Indication: ACUTE CORONARY SYNDROME
     Dosage: 8000 INTERNATIONAL UNITS, IN THOUSANDS DAILY
     Route: 058
     Dates: start: 20150925, end: 20151005
  7. CLARITHROMYCIN. [Concomitant]
     Active Substance: CLARITHROMYCIN
     Indication: SURGERY
     Route: 042
     Dates: start: 20150925
  8. ALDACTONE [Concomitant]
     Active Substance: SPIRONOLACTONE
     Dosage: ALDACTONE (SPIRONOLACTONE) - 25 MG HARD CAPSULES
     Route: 048
  9. TORVAST [Concomitant]
     Active Substance: ATORVASTATIN
     Dosage: TORVAST (ATORVASTATIN CALCIUM) - 80 MG FILM-COATED TABLETS
     Route: 048

REACTIONS (3)
  - Anaemia [Recovered/Resolved]
  - Dysphoria [Recovered/Resolved]
  - Loss of consciousness [Recovered/Resolved]

NARRATIVE: CASE EVENT DATE: 20151004
